FAERS Safety Report 4893346-4 (Version None)
Quarter: 2006Q1

REPORT INFORMATION
  Report Type: 
  Country: None (occurrence: None)
  Receive Date: 20060125
  Receipt Date: 20060125
  Transmission Date: 20060701
  Serious: Yes (Life-Threatening)
  Sender: FDA-Public Use
  Company Number: None

PATIENT
  Sex: Female
  Weight: 16.6 kg

DRUGS (3)
  1. CARBOPLATIN [Suspect]
     Indication: NEUROBLASTOMA
     Dosage: 260 MG Q24 H IV
     Route: 042
     Dates: start: 20051229, end: 20060101
  2. ETOPOSIDE [Suspect]
     Indication: NEUROBLASTOMA
     Dosage: 210 MG Q24 H IV
     Route: 042
     Dates: start: 20051229, end: 20060101
  3. ..... [Concomitant]

REACTIONS (7)
  - ABDOMINAL DISTENSION [None]
  - AMMONIA INCREASED [None]
  - CAECITIS [None]
  - MUCOSAL INFLAMMATION [None]
  - PULMONARY OEDEMA [None]
  - RENAL FAILURE [None]
  - URINE OUTPUT DECREASED [None]
